FAERS Safety Report 20191859 (Version 1)
Quarter: 2021Q4

REPORT INFORMATION
  Report Type: Report from Study
  Country: US (occurrence: US)
  Receive Date: 20211216
  Receipt Date: 20211216
  Transmission Date: 20220303
  Serious: No
  Sender: FDA-Public Use
  Company Number: US-NOVARTISTESTPH-NVSC2021US288016

PATIENT
  Age: 52 Year
  Sex: Female

DRUGS (1)
  1. ILARIS [Suspect]
     Active Substance: CANAKINUMAB
     Indication: Still^s disease
     Dosage: 150 MG, EVERY 60 DAYS
     Route: 065
     Dates: start: 20200828

REACTIONS (1)
  - Inappropriate schedule of product administration [Unknown]

NARRATIVE: CASE EVENT DATE: 20211208
